FAERS Safety Report 4590073-8 (Version None)
Quarter: 2005Q1

REPORT INFORMATION
  Report Type: 
  Country: None (occurrence: None)
  Receive Date: 20050217
  Receipt Date: 20050207
  Transmission Date: 20050727
  Serious: Yes (Hospitalization)
  Sender: FDA-Public Use
  Company Number: 2004211265FR

PATIENT
  Age: 74 Year
  Weight: 90 kg

DRUGS (14)
  1. LINEZOLID                                  (LINEZOLID) [Suspect]
     Indication: ILL-DEFINED DISORDER
     Dosage: 1200 MG (DAILY), ORAL
     Route: 048
     Dates: start: 20040210, end: 20040216
  2. DEXCHLORPHENIRAMINE MALEATE [Suspect]
     Indication: ILL-DEFINED DISORDER
     Dosage: 12 MG (DAILY), ORAL
     Route: 048
     Dates: start: 20040210
  3. ACENOCOUMAROL                                 (ACENOCOUMAROL) [Suspect]
     Indication: ILL-DEFINED DISORDER
     Dosage: 0.5 MG (DAILY), ORAL
     Route: 048
     Dates: start: 20000615
  4. FUROSEMIDE [Concomitant]
  5. ALLOPURINOL [Concomitant]
  6. DIGOXIN [Concomitant]
  7. AMOXICILLIN TRIHYDRATE [Concomitant]
  8. GENTAMICIN [Concomitant]
  9. TEICOPLANIN (TEICOPLANIN) [Concomitant]
  10. MONTELUKAST (MONTELUKAST) [Concomitant]
  11. CETIRIZINE HCL [Concomitant]
  12. CROMOGLICATE SODIUM (CROMOGLICATE SODIUM) [Concomitant]
  13. TRAMADOL HCL [Concomitant]
  14. IRBESARTAN [Concomitant]

REACTIONS (15)
  - BLOOD LACTATE DEHYDROGENASE INCREASED [None]
  - CONFUSIONAL STATE [None]
  - COOMBS TEST POSITIVE [None]
  - DISINHIBITION [None]
  - DISORIENTATION [None]
  - DISTURBANCE IN ATTENTION [None]
  - DRUG INTERACTION [None]
  - DRUG TOXICITY [None]
  - ELECTROENCEPHALOGRAM ABNORMAL [None]
  - HAEMOLYSIS [None]
  - HALLUCINATION [None]
  - HYPERBILIRUBINAEMIA [None]
  - HYPOPROTHROMBINAEMIA [None]
  - INTERNATIONAL NORMALISED RATIO INCREASED [None]
  - TOXIC SKIN ERUPTION [None]
